FAERS Safety Report 18233991 (Version 3)
Quarter: 2020Q3

REPORT INFORMATION
  Report Type: Report from Study
  Country: CH (occurrence: CH)
  Receive Date: 20200904
  Receipt Date: 20200924
  Transmission Date: 20201103
  Serious: Yes (Life-Threatening, Hospitalization)
  Sender: FDA-Public Use
  Company Number: CH-BRISTOL-MYERS SQUIBB COMPANY-BMS-2020-069513

PATIENT
  Age: 65 Year
  Sex: Male

DRUGS (2)
  1. NIVOLUMAB [Suspect]
     Active Substance: NIVOLUMAB
     Indication: RENAL CELL CARCINOMA
     Dosage: 480 MILLIGRAM
     Route: 042
     Dates: start: 20200108, end: 20200818
  2. IPILIMUMAB [Suspect]
     Active Substance: IPILIMUMAB
     Indication: RENAL CELL CARCINOMA
     Dosage: 105 MILLIGRAM
     Route: 042
     Dates: start: 20200122, end: 20200122

REACTIONS (1)
  - Hypophysitis [Recovered/Resolved with Sequelae]

NARRATIVE: CASE EVENT DATE: 20200824
